FAERS Safety Report 10249591 (Version 1)
Quarter: 2014Q2

REPORT INFORMATION
  Report Type: Spontaneous
  Country: US (occurrence: None)
  Receive Date: 20140619
  Receipt Date: 20140619
  Transmission Date: 20141212
  Serious: Yes (Hospitalization)
  Sender: FDA-Public Use
  Company Number: None

PATIENT
  Age: 73 Year
  Sex: Female
  Weight: 64 kg

DRUGS (5)
  1. VOTRIENT [Suspect]
     Indication: PLEOMORPHIC LIPOSARCOMA
     Route: 048
     Dates: start: 20140531, end: 20140606
  2. GLIPIZIDE [Concomitant]
  3. LORAZEPAM [Concomitant]
  4. NAPROSYN [Concomitant]
  5. TRAMADOL [Concomitant]

REACTIONS (4)
  - Muscle spasms [None]
  - Diarrhoea [None]
  - Abdominal pain lower [None]
  - Nausea [None]
